FAERS Safety Report 13861451 (Version 2)
Quarter: 2017Q3

REPORT INFORMATION
  Report Type: Report from Study
  Country: US (occurrence: US)
  Receive Date: 20170811
  Receipt Date: 20170925
  Transmission Date: 20171127
  Serious: Yes (Other)
  Sender: FDA-Public Use
  Company Number: US-ALLERGAN-1733980US

PATIENT
  Age: 64 Year
  Sex: Female

DRUGS (1)
  1. ESCITALOPRAM OXALATE 20MG TAB (TBD) [Suspect]
     Active Substance: ESCITALOPRAM OXALATE
     Indication: PRODUCT USED FOR UNKNOWN INDICATION
     Dosage: 20 MG, UNKNOWN
     Route: 065

REACTIONS (5)
  - Self-injurious ideation [Recovered/Resolved]
  - Prescription drug used without a prescription [Unknown]
  - Psychotic behaviour [Not Recovered/Not Resolved]
  - Rib fracture [Not Recovered/Not Resolved]
  - Anger [Not Recovered/Not Resolved]
